FAERS Safety Report 10276355 (Version 3)
Quarter: 2014Q3

REPORT INFORMATION
  Report Type: Spontaneous
  Country: US (occurrence: None)
  Receive Date: 20140630
  Receipt Date: 20140801
  Transmission Date: 20150326
  Serious: Yes (Hospitalization)
  Sender: FDA-Public Use
  Company Number: 2014-US-003906

PATIENT
  Age: 54 Year
  Sex: Female
  Weight: 60.1 kg

DRUGS (10)
  1. MARCAINE [Suspect]
     Active Substance: BUPIVACAINE HYDROCHLORIDE
     Indication: LUMBAR RADICULOPATHY
     Route: 037
     Dates: end: 20130111
  2. PRIALT [Suspect]
     Active Substance: ZICONOTIDE ACETATE
     Indication: PAIN
     Dosage: UNK UG, QH, INTRATHECAL
     Route: 037
     Dates: end: 20130501
  3. DILAUDID [Suspect]
     Active Substance: HYDROMORPHONE HYDROCHLORIDE
     Indication: PAIN
     Route: 037
     Dates: end: 20130111
  4. MARCAINE [Suspect]
     Active Substance: BUPIVACAINE HYDROCHLORIDE
     Indication: PAIN
     Route: 037
     Dates: end: 20130111
  5. CLONIDINE HCL (CLONIDINE HYDROCHLORIDE) INJECTION [Suspect]
     Active Substance: CLONIDINE HYDROCHLORIDE
     Indication: PAIN
     Dosage: UNK UG, QH, INTRATHECAL
     Route: 037
     Dates: end: 20130111
  6. OXYCONTIN [Concomitant]
     Active Substance: OXYCODONE HYDROCHLORIDE
  7. KLONOPIN [Concomitant]
     Active Substance: CLONAZEPAM
  8. CLONIDINE HCL (CLONIDINE HYDROCHLORIDE) INJECTION [Suspect]
     Active Substance: CLONIDINE HYDROCHLORIDE
     Indication: LUMBAR RADICULOPATHY
     Dosage: UNK UG, QH, INTRATHECAL
     Route: 037
     Dates: end: 20130111
  9. PRIALT [Suspect]
     Active Substance: ZICONOTIDE ACETATE
     Indication: LUMBAR RADICULOPATHY
     Dosage: UNK UG, QH, INTRATHECAL
     Route: 037
     Dates: end: 20130501
  10. DILAUDID [Suspect]
     Active Substance: HYDROMORPHONE HYDROCHLORIDE
     Indication: LUMBAR RADICULOPATHY
     Route: 037
     Dates: end: 20130111

REACTIONS (14)
  - Hallucination, auditory [None]
  - Feeling abnormal [None]
  - Device issue [None]
  - Device failure [None]
  - Hypotension [None]
  - Confusional state [None]
  - Gait disturbance [None]
  - Hip arthroplasty [None]
  - Accidental overdose [None]
  - Hallucination [None]
  - Hypoaesthesia [None]
  - Dizziness [None]
  - Pain [None]
  - Device leakage [None]

NARRATIVE: CASE EVENT DATE: 20130812
